FAERS Safety Report 16387775 (Version 2)
Quarter: 2019Q2

REPORT INFORMATION
  Report Type: Spontaneous
  Country: US (occurrence: US)
  Receive Date: 20190604
  Receipt Date: 20190606
  Transmission Date: 20190711
  Serious: No
  Sender: FDA-Public Use
  Company Number: US-LEO PHARMA-318942

PATIENT
  Sex: Male

DRUGS (1)
  1. SKINOREN CUTANEOUS FOAM [Suspect]
     Active Substance: AZELAIC ACID
     Indication: ACNE
     Dosage: ON AND OFF
     Route: 061

REACTIONS (4)
  - Pruritus [Unknown]
  - Discomfort [Unknown]
  - Product use in unapproved indication [Unknown]
  - Arthropod sting [Not Recovered/Not Resolved]
